FAERS Safety Report 5271654-5 (Version None)
Quarter: 2007Q1

REPORT INFORMATION
  Report Type: 
  Country: None (occurrence: None)
  Receive Date: 20070321
  Receipt Date: 20070312
  Transmission Date: 20070707
  Serious: Yes (Other)
  Sender: FDA-Public Use
  Company Number: US-PFIZER INC-2007019334

PATIENT
  Sex: Female
  Weight: 65.8 kg

DRUGS (2)
  1. BEXTRA [Suspect]
     Dosage: TEXT:UNKNOWN
  2. CELEBREX [Suspect]
     Indication: ARTHRITIS
     Dosage: TEXT:UNKNOWN

REACTIONS (1)
  - CARDIAC DISORDER [None]
